FAERS Safety Report 17768413 (Version 1)
Quarter: 2020Q2

REPORT INFORMATION
  Report Type: Report from Study
  Country: US (occurrence: US)
  Receive Date: 20200511
  Receipt Date: 20200511
  Transmission Date: 20200714
  Serious: Yes (Other)
  Sender: FDA-Public Use
  Company Number: US-BAXTER-2020BAX009871

PATIENT
  Age: 66 Year
  Sex: Female

DRUGS (1)
  1. CARDENE [Suspect]
     Active Substance: NICARDIPINE HYDROCHLORIDE
     Indication: BLOOD PRESSURE INADEQUATELY CONTROLLED
     Dosage: ON POST-HEMORRHAGE DAY 2
     Route: 041

REACTIONS (2)
  - Paradoxical drug reaction [Recovered/Resolved]
  - Cerebral vasoconstriction [Recovered/Resolved]
